FAERS Safety Report 5401516-1 (Version None)
Quarter: 2007Q3

REPORT INFORMATION
  Report Type: 
  Country: None (occurrence: None)
  Receive Date: 20070731
  Receipt Date: 20070718
  Transmission Date: 20080115
  Serious: Yes (Death)
  Sender: FDA-Public Use
  Company Number: CA-GENENTECH-245274

PATIENT
  Sex: Male

DRUGS (5)
  1. AVASTIN [Suspect]
     Indication: GASTROINTESTINAL CARCINOMA
     Dosage: 440 MG, Q2W
     Route: 042
     Dates: start: 20070122
  2. FLUOROURACIL [Concomitant]
     Indication: GASTROINTESTINAL CARCINOMA
  3. FOLINIC ACID [Concomitant]
     Indication: GASTROINTESTINAL CARCINOMA
  4. IRINOTECAN HCL [Concomitant]
     Indication: GASTROINTESTINAL CARCINOMA
  5. DILAUDID [Concomitant]
     Indication: DRUG USE FOR UNKNOWN INDICATION

REACTIONS (1)
  - DEATH [None]
